FAERS Safety Report 7775908-X (Version None)
Quarter: 2011Q3

REPORT INFORMATION
  Report Type: 
  Country: None (occurrence: None)
  Receive Date: 20110923
  Receipt Date: 20110921
  Transmission Date: 20111222
  Serious: Yes (Other)
  Sender: FDA-Public Use
  Company Number: CN-ABBOTT-11P-035-0856944-00

PATIENT
  Age: 11 Year
  Sex: Male

DRUGS (2)
  1. DEPAKENE [Suspect]
     Indication: EPILEPSY
     Dosage: 500 MILLIGRAM(S); DAILY
     Route: 048
     Dates: start: 20110701, end: 20110801
  2. DEPAKENE [Suspect]
     Dosage: 750 MILLIGRAM(S); DAILY
     Route: 048
     Dates: start: 20110801

REACTIONS (3)
  - CONVULSION [None]
  - SYNCOPE [None]
  - LOSS OF CONSCIOUSNESS [None]
